FAERS Safety Report 17734826 (Version 1)
Quarter: 2020Q2

REPORT INFORMATION
  Report Type: Report from Study
  Country: US (occurrence: US)
  Receive Date: 20200501
  Receipt Date: 20200501
  Transmission Date: 20200714
  Serious: Yes (Other)
  Sender: FDA-Public Use
  Company Number: US-GLAXOSMITHKLINE-US2020TSO006078

PATIENT
  Sex: Female

DRUGS (1)
  1. NIRAPARIB [Suspect]
     Active Substance: NIRAPARIB
     Indication: OVARIAN CANCER
     Dosage: 200 MG PM WITHOUT FOOD
     Route: 048
     Dates: start: 20191231, end: 202004

REACTIONS (22)
  - Constipation [Not Recovered/Not Resolved]
  - Therapy cessation [Unknown]
  - Nausea [Not Recovered/Not Resolved]
  - Decreased appetite [Unknown]
  - Cough [Unknown]
  - Rhinorrhoea [Unknown]
  - Somnolence [Unknown]
  - Carbohydrate antigen 125 increased [Not Recovered/Not Resolved]
  - Asthenia [Unknown]
  - Mobility decreased [Unknown]
  - Upper-airway cough syndrome [Unknown]
  - Insomnia [Unknown]
  - Recurrent cancer [Unknown]
  - Headache [Recovered/Resolved]
  - Renal disorder [Unknown]
  - Tremor [Unknown]
  - Red blood cell count decreased [Unknown]
  - Hypertension [Recovered/Resolved]
  - Taste disorder [Unknown]
  - Vomiting [Unknown]
  - Blood pressure diastolic increased [Recovering/Resolving]
  - Weight decreased [Unknown]
